FAERS Safety Report 4454147-4 (Version None)
Quarter: 2004Q3

REPORT INFORMATION
  Report Type: 
  Country: None (occurrence: None)
  Receive Date: 20040826
  Receipt Date: 20040716
  Transmission Date: 20050211
  Serious: No
  Sender: FDA-Public Use
  Company Number: WAES 0407USA01328

PATIENT

DRUGS (2)
  1. ZETIA [Suspect]
     Indication: BLOOD CHOLESTEROL INCREASED
     Dosage: PO
     Route: 048
     Dates: end: 20040201
  2. TAB EZETROL 10 MG [Suspect]
     Indication: BLOOD CHOLESTEROL INCREASED
     Dates: start: 20040201

REACTIONS (1)
  - LOW DENSITY LIPOPROTEIN INCREASED [None]
